FAERS Safety Report 21067048 (Version 1)
Quarter: 2022Q3

REPORT INFORMATION
  Report Type: Report from Study
  Country: US (occurrence: US)
  Receive Date: 20220712
  Receipt Date: 20220712
  Transmission Date: 20221027
  Serious: Yes (Other)
  Sender: FDA-Public Use
  Company Number: US-SUN PHARMACEUTICAL INDUSTRIES LTD-2022R1-343711

PATIENT
  Sex: Male
  Weight: 3.045 kg

DRUGS (6)
  1. DIGOXIN [Suspect]
     Active Substance: DIGOXIN
     Indication: Influenza
     Dosage: 750 MICROGRAM, DAILY DIVIDED
     Route: 064
  2. DIGOXIN [Suspect]
     Active Substance: DIGOXIN
     Dosage: DOSE DECREASED
     Route: 064
  3. FLECAINIDE ACETATE [Suspect]
     Active Substance: FLECAINIDE ACETATE
     Indication: Influenza
     Dosage: 100 MILLIGRAM, EVERY 8 HOURS
     Route: 064
  4. FLECAINIDE ACETATE [Suspect]
     Active Substance: FLECAINIDE ACETATE
     Dosage: DOSE DECREASED
     Route: 064
  5. FLECAINIDE ACETATE [Suspect]
     Active Substance: FLECAINIDE ACETATE
     Dosage: 100 MILLIGRAM, EVERY 8 HOURS
     Route: 064
  6. OSELTAMIVIR [Suspect]
     Active Substance: OSELTAMIVIR
     Indication: Influenza
     Dosage: 75 MILLIGRAM, BID
     Route: 064

REACTIONS (2)
  - Supraventricular tachycardia [Recovered/Resolved]
  - Foetal exposure during pregnancy [Unknown]
